FAERS Safety Report 6722763-2 (Version None)
Quarter: 2010Q2

REPORT INFORMATION
  Report Type: 
  Country: None (occurrence: None)
  Receive Date: 20100511
  Receipt Date: 20100426
  Transmission Date: 20101027
  Serious: Yes (Other)
  Sender: FDA-Public Use
  Company Number: 2010-1389

PATIENT

DRUGS (1)
  1. SOMATULINE DEPOT [Suspect]
     Indication: DRUG USE FOR UNKNOWN INDICATION
     Dosage: (60 MG,1 IN 28 D),SUBCUTANEOUS
     Route: 058

REACTIONS (2)
  - ABDOMINAL PAIN [None]
  - DIARRHOEA [None]
